FAERS Safety Report 20942777 (Version 1)
Quarter: 2022Q2

REPORT INFORMATION
  Report Type: Spontaneous
  Country: US (occurrence: US)
  Receive Date: 20220610
  Receipt Date: 20220610
  Transmission Date: 20220720
  Serious: No
  Sender: FDA-Public Use
  Company Number: US-ALLERGAN-2205674US

PATIENT
  Age: 33 Year
  Sex: Female
  Weight: 72.574 kg

DRUGS (21)
  1. VIBERZI [Suspect]
     Active Substance: ELUXADOLINE
     Indication: Diarrhoea
     Dosage: 100 MG, QD
     Route: 048
     Dates: start: 20220326, end: 20220328
  2. VIBERZI [Suspect]
     Active Substance: ELUXADOLINE
     Indication: Colitis ulcerative
     Dosage: 100 MG, QD
     Route: 048
     Dates: start: 20220321, end: 20220321
  3. METOPROLOL [Concomitant]
     Active Substance: METOPROLOL
     Indication: Heart rate increased
  4. OMEPRAZOLE [Concomitant]
     Active Substance: OMEPRAZOLE
     Indication: Gastrooesophageal reflux disease
  5. CLARITIN [Concomitant]
     Active Substance: LORATADINE
     Indication: Hypersensitivity
  6. HERBALS\TURMERIC [Concomitant]
     Active Substance: HERBALS\TURMERIC
     Indication: Inflammation
  7. ZINC [Concomitant]
     Active Substance: ZINC
     Indication: Immune system disorder
  8. QUERCETIN [Concomitant]
     Active Substance: QUERCETIN
     Indication: Lung disorder
  9. FERRITIN [Concomitant]
     Active Substance: FERRITIN
     Indication: Anaemia
  10. VITAMIN C [Concomitant]
     Active Substance: ASCORBIC ACID
     Indication: Immune system disorder
  11. GAMMAGARD [Concomitant]
     Active Substance: HUMAN IMMUNOGLOBULIN G
     Indication: Immune system disorder
     Route: 058
  12. MIRABEGRON [Concomitant]
     Active Substance: MIRABEGRON
     Indication: Cystitis noninfective
  13. AMITRIPTYLINE [Concomitant]
     Active Substance: AMITRIPTYLINE
     Indication: Cystitis
  14. TOVIAZ [Concomitant]
     Active Substance: FESOTERODINE FUMARATE
     Indication: Cystitis noninfective
  15. XYZAL [Concomitant]
     Active Substance: LEVOCETIRIZINE DIHYDROCHLORIDE
     Indication: Hypersensitivity
  16. DOXYCYCLINE [Concomitant]
     Active Substance: DOXYCYCLINE
     Indication: Infection
  17. BENADRYL [Concomitant]
     Active Substance: DIPHENHYDRAMINE HYDROCHLORIDE
     Indication: Hypersensitivity
  18. ZOLPAX [Concomitant]
     Indication: Migraine
  19. REMICADE [Concomitant]
     Active Substance: INFLIXIMAB
     Indication: Colitis ulcerative
  20. RITUXAN [Concomitant]
     Active Substance: RITUXIMAB
     Indication: Lung disorder
  21. MIRENA [Concomitant]
     Active Substance: LEVONORGESTREL
     Indication: Contraception
     Dosage: UNK
     Route: 015
     Dates: start: 2019

REACTIONS (6)
  - Pyrexia [Recovered/Resolved]
  - Diarrhoea [Recovering/Resolving]
  - Heart rate increased [Recovered/Resolved]
  - Dehydration [Recovered/Resolved]
  - Product use in unapproved indication [Unknown]
  - Abdominal pain upper [Recovered/Resolved]

NARRATIVE: CASE EVENT DATE: 20220321
